FAERS Safety Report 9184547 (Version 1)
Quarter: 2012Q4

REPORT INFORMATION
  Report Type: 
  Country: ES (occurrence: ES)
  Receive Date: 20121031
  Receipt Date: 20121031
  Transmission Date: 20130627
  Serious: Yes (Other)
  Sender: FDA-Public Use
  Company Number: ES-009507513-1210ESP011451

PATIENT
  Age: 35 Year
  Sex: Male

DRUGS (1)
  1. PROPECIA [Suspect]
     Indication: ANDROGENETIC ALOPECIA
     Dosage: 1 mg, qd
     Route: 048
     Dates: start: 2008, end: 2012

REACTIONS (2)
  - Azoospermia [Recovered/Resolved]
  - Asthenospermia [Recovered/Resolved]
